FAERS Safety Report 20784178 (Version 2)
Quarter: 2022Q2

REPORT INFORMATION
  Report Type: Spontaneous
  Country: JP (occurrence: JP)
  Receive Date: 20220504
  Receipt Date: 20220520
  Transmission Date: 20220721
  Serious: Yes (Hospitalization, Other)
  Sender: FDA-Public Use
  Company Number: JP-MSD-M2022-17754

PATIENT
  Age: 7 Decade
  Sex: Male

DRUGS (6)
  1. KEYTRUDA [Suspect]
     Active Substance: PEMBROLIZUMAB
     Indication: Oesophageal carcinoma
     Dosage: 200 MILLIGRAM, Q3W
     Route: 041
     Dates: start: 20220404, end: 20220404
  2. KEYTRUDA [Suspect]
     Active Substance: PEMBROLIZUMAB
     Dosage: UNK
     Route: 041
     Dates: start: 202205
  3. CISPLATIN [Concomitant]
     Active Substance: CISPLATIN
     Dosage: 80 MILLIGRAM, Q3W
     Route: 041
     Dates: start: 20220404, end: 20220404
  4. CISPLATIN [Concomitant]
     Active Substance: CISPLATIN
     Dosage: 64 MILLIGRAM, Q3W
     Route: 041
     Dates: start: 202205
  5. FLUOROURACIL [Concomitant]
     Active Substance: FLUOROURACIL
     Dosage: 800 MILLIGRAM, Q3W
     Route: 041
     Dates: start: 20220404, end: 20220404
  6. FLUOROURACIL [Concomitant]
     Active Substance: FLUOROURACIL
     Dosage: 640 MILLIGRAM, Q3W
     Route: 041
     Dates: start: 202205

REACTIONS (1)
  - Myelosuppression [Recovered/Resolved]

NARRATIVE: CASE EVENT DATE: 20220405
